FAERS Safety Report 18495367 (Version 1)
Quarter: 2020Q4

REPORT INFORMATION
  Report Type: Spontaneous
  Country: US (occurrence: US)
  Receive Date: 20201110
  Receipt Date: 20201110
  Transmission Date: 20210114
  Serious: No
  Sender: FDA-Public Use
  Company Number: None

PATIENT
  Age: 45 Year
  Sex: Female
  Weight: 71.21 kg

DRUGS (2)
  1. ALCOHOL PREP PAD [Suspect]
     Active Substance: ISOPROPYL ALCOHOL
  2. ACETONE-FREE ADHESIVE REMOVER PAD [Suspect]
     Active Substance: DEVICE

REACTIONS (1)
  - Application site rash [None]

NARRATIVE: CASE EVENT DATE: 20201024
